FAERS Safety Report 13095348 (Version 1)
Quarter: 2017Q1

REPORT INFORMATION
  Report Type: Spontaneous
  Country: US (occurrence: US)
  Receive Date: 20170108
  Receipt Date: 20170108
  Transmission Date: 20170428
  Serious: No
  Sender: FDA-Public Use
  Company Number: US-GRANULES INDIA LIMITED-1061716

PATIENT
  Age: 43 Year
  Sex: Female
  Weight: 130.91 kg

DRUGS (1)
  1. METFORMIN HYDROCHLORIDE. [Suspect]
     Active Substance: METFORMIN HYDROCHLORIDE
     Indication: TYPE 2 DIABETES MELLITUS
     Route: 048

REACTIONS (4)
  - Product odour abnormal [Unknown]
  - Drug ineffective [Unknown]
  - Product taste abnormal [Unknown]
  - Diabetes mellitus inadequate control [Unknown]
